FAERS Safety Report 4586686-X (Version None)
Quarter: 2005Q1

REPORT INFORMATION
  Report Type: 
  Country: None (occurrence: None)
  Receive Date: 20050217
  Receipt Date: 20050217
  Transmission Date: 20050727
  Serious: Yes (Other)
  Sender: FDA-Public Use
  Company Number: None

PATIENT
  Sex: Female
  Weight: 97.0698 kg

DRUGS (2)
  1. ORTHO-NOVUM [Suspect]
     Indication: CONTRACEPTION
     Dosage: 1 PO QD
     Route: 048
     Dates: start: 20040901, end: 20041101
  2. ORTHO-NOVUM [Suspect]
     Indication: MENSTRUATION IRREGULAR
     Dosage: 1 PO QD
     Route: 048
     Dates: start: 20040901, end: 20041101

REACTIONS (1)
  - MENSTRUATION IRREGULAR [None]
